FAERS Safety Report 10208966 (Version 1)
Quarter: 2014Q2

REPORT INFORMATION
  Report Type: Spontaneous
  Country: CA (occurrence: CA)
  Receive Date: 20140530
  Receipt Date: 20140530
  Transmission Date: 20141212
  Serious: Yes (Life-Threatening)
  Sender: FDA-Public Use
  Company Number: CA-B.I. PHARMACEUTICALS,INC./RIDGEFIELD-2014-BI-23988CN

PATIENT
  Age: 44 Year
  Sex: Male
  Weight: 131 kg

DRUGS (4)
  1. MICARDIS [Suspect]
     Indication: PRODUCT USED FOR UNKNOWN INDICATION
     Dosage: 80 MG
     Route: 048
  2. INDAPAMIDE [Concomitant]
     Route: 065
  3. NIFEDIPINE [Concomitant]
     Route: 065
  4. TERAZOSIN [Concomitant]
     Route: 065

REACTIONS (3)
  - Angioedema [Recovered/Resolved]
  - Choking [Recovered/Resolved]
  - Pharyngeal oedema [Recovered/Resolved]
